FAERS Safety Report 4292129-6 (Version None)
Quarter: 2004Q1

REPORT INFORMATION
  Report Type: 
  Country: None (occurrence: None)
  Receive Date: 20040211
  Receipt Date: 20031211
  Transmission Date: 20041129
  Serious: No
  Sender: FDA-Public Use
  Company Number: US-GLAXOSMITHKLINE-A0442775A

PATIENT
  Sex: Female

DRUGS (3)
  1. LAMICTAL [Suspect]
     Indication: BIPOLAR DISORDER
     Dosage: 950MG PER DAY
     Route: 048
  2. EFFEXOR [Concomitant]
  3. TRAZODONE HCL [Concomitant]

REACTIONS (4)
  - DIARRHOEA [None]
  - LISTLESS [None]
  - OVERDOSE [None]
  - SUICIDAL IDEATION [None]
